FAERS Safety Report 7396002-6 (Version None)
Quarter: 2011Q2

REPORT INFORMATION
  Report Type: 
  Country: None (occurrence: None)
  Receive Date: 20110406
  Receipt Date: 20110329
  Transmission Date: 20111010
  Serious: Yes (Life-Threatening, Hospitalization)
  Sender: FDA-Public Use
  Company Number: DK-RANBAXY-2011R1-43423

PATIENT
  Age: 51 Year
  Sex: Male
  Weight: 80 kg

DRUGS (1)
  1. CLARITHROMYCIN [Suspect]
     Indication: INFECTION
     Dosage: 1000 MG, 1DAYS
     Route: 048
     Dates: start: 20110126

REACTIONS (3)
  - DELIRIUM [None]
  - HALLUCINATION [None]
  - PERSONALITY CHANGE [None]
